FAERS Safety Report 9458612 (Version 1)
Quarter: 2013Q3

REPORT INFORMATION
  Report Type: Spontaneous
  Country: US (occurrence: None)
  Receive Date: 20130813
  Receipt Date: 20130813
  Transmission Date: 20140515
  Serious: Yes (Other)
  Sender: FDA-Public Use
  Company Number: None

PATIENT
  Age: 73 Year
  Sex: Female

DRUGS (1)
  1. HUMIRA [Suspect]
     Indication: CROHN^S DISEASE
     Dosage: SUBCUTANEOUS 057  INJECTABLE  EVERY WEEK
     Route: 058
     Dates: start: 20130617

REACTIONS (2)
  - Rash [None]
  - Dysuria [None]
